FAERS Safety Report 9400393 (Version 1)
Quarter: 2013Q3

REPORT INFORMATION
  Report Type: Report from Study
  Country: CA (occurrence: CA)
  Receive Date: 20130715
  Receipt Date: 20130715
  Transmission Date: 20140515
  Serious: Yes (Other)
  Sender: FDA-Public Use
  Company Number: CA-JNJFOC-20130705291

PATIENT
  Age: 64 Year
  Sex: Male
  Weight: 88 kg

DRUGS (6)
  1. REMICADE [Suspect]
     Indication: COLITIS ULCERATIVE
     Route: 042
     Dates: start: 20110503
  2. ASACOL [Concomitant]
     Route: 065
  3. CARBIDOPA [Concomitant]
     Route: 065
  4. REACTINE [Concomitant]
     Route: 065
  5. TYLENOL [Concomitant]
     Route: 065
  6. BENADRYL [Concomitant]
     Route: 065

REACTIONS (1)
  - Atrial fibrillation [Not Recovered/Not Resolved]
